FAERS Safety Report 14972586 (Version 1)
Quarter: 2018Q2

REPORT INFORMATION
  Report Type: Spontaneous
  Country: US (occurrence: US)
  Receive Date: 20180605
  Receipt Date: 20180605
  Transmission Date: 20180711
  Serious: No
  Sender: FDA-Public Use
  Company Number: US-AUROBINDO-AUR-APU-2018-003278

PATIENT
  Age: 81 Year
  Sex: Female
  Weight: 61.22 kg

DRUGS (6)
  1. ACETAMINOPHEN AND CODEINE PHOSPHATE TABLETS USP 300 MG/30 MG [Suspect]
     Active Substance: ACETAMINOPHEN\CODEINE PHOSPHATE
     Indication: CEREBROVASCULAR ACCIDENT
  2. BABY ASPIRIN [Concomitant]
     Active Substance: ASPIRIN
  3. ATENOLOL. [Concomitant]
     Active Substance: ATENOLOL
  4. ACETAMINOPHEN AND CODEINE PHOSPHATE TABLETS USP 300 MG/30 MG [Suspect]
     Active Substance: ACETAMINOPHEN\CODEINE PHOSPHATE
     Indication: SPINAL OPERATION
     Dosage: UNK
     Dates: start: 201711, end: 201801
  5. AVAPRO [Concomitant]
     Active Substance: IRBESARTAN
  6. BENADRYL [Concomitant]
     Active Substance: DIPHENHYDRAMINE HYDROCHLORIDE

REACTIONS (1)
  - Diarrhoea [Not Recovered/Not Resolved]

NARRATIVE: CASE EVENT DATE: 201711
